FAERS Safety Report 14336521 (Version 8)
Quarter: 2018Q2

REPORT INFORMATION
  Report Type: Spontaneous
  Country: IT (occurrence: IT)
  Receive Date: 20171229
  Receipt Date: 20180510
  Transmission Date: 20180711
  Serious: Yes (Other)
  Sender: FDA-Public Use
  Company Number: IT-PFIZER INC-2017552690

PATIENT
  Age: 70 Year
  Sex: Male

DRUGS (11)
  1. FLUOROURACIL. [Suspect]
     Active Substance: FLUOROURACIL
     Dosage: 2.400 MG/M2, 46-H CONTINUOUS INFUSION REPEATED EVERY 14 D
  2. CAPECITABINE. [Suspect]
     Active Substance: CAPECITABINE
     Indication: ADENOCARCINOMA OF COLON
     Dosage: 1000 MG/M2, CYCLIC (TWICE DAILY ON DAYS 1-14 EVERY 3 WK, FOR 7 CYCLES)
     Dates: start: 201204, end: 201312
  3. CAPECITABINE. [Suspect]
     Active Substance: CAPECITABINE
     Dosage: CYCLIC, 750 MG/MQ BIS/DIE FROM DAY 1 TO DAY 14 EVERY 21 D
  4. PANITUMUMAB [Suspect]
     Active Substance: PANITUMUMAB
     Indication: ADENOCARCINOMA OF COLON
     Dosage: 6 MG/KG, CYCLIC (6 MG/KG ON DAY 1, REPEATED EVERY 14 D)
     Route: 065
     Dates: start: 201410
  5. IRINOTECAN HCL [Suspect]
     Active Substance: IRINOTECAN HYDROCHLORIDE
     Indication: ADENOCARCINOMA OF COLON
     Dosage: 180 MG/M2, CYCLIC ON DAY 1
     Dates: start: 201410, end: 201501
  6. FOLINIC ACID [Suspect]
     Active Substance: LEUCOVORIN
     Indication: ADENOCARCINOMA OF COLON
     Dosage: 200 MG/M2, CYCLIC AS A 2-H INFUSION ON DAY 1
     Dates: start: 201410, end: 201501
  7. BEVACIZUMAB. [Suspect]
     Active Substance: BEVACIZUMAB
     Dosage: 7.5 MG/KG, ONCE EVERY 3 WK
     Route: 065
  8. FLUOROURACIL. [Suspect]
     Active Substance: FLUOROURACIL
     Indication: ADENOCARCINOMA OF COLON
     Dosage: 400 MG/M2, CYCLIC (400 MG/M2 ON DAY 1)
     Route: 040
     Dates: start: 201410, end: 201501
  9. PANITUMUMAB [Suspect]
     Active Substance: PANITUMUMAB
     Dosage: UNK, CYCLIC (60% OF THE ORIGINAL DOSE, EVERY THREE WEEKS)
     Dates: start: 201506
  10. BEVACIZUMAB. [Suspect]
     Active Substance: BEVACIZUMAB
     Indication: ADENOCARCINOMA OF COLON
     Dosage: 7.5 MG/KG, CYCLIC (7.5 MG/KG ON DAY 1 OF THE 3-WEEKLY CYCLE, FOR 7 CYCLES)
     Dates: start: 201204, end: 201312
  11. OXALIPLATIN. [Suspect]
     Active Substance: OXALIPLATIN
     Indication: ADENOCARCINOMA OF COLON
     Dosage: 130 MG/M2, CYCLIC ON DAY 1, FOR 7 CYCLES, REDUCED AT THE 6TH CYCLE
     Dates: start: 201204

REACTIONS (6)
  - Neutropenia [Unknown]
  - Asthenia [Unknown]
  - Palmar-plantar erythrodysaesthesia syndrome [Unknown]
  - Skin toxicity [Unknown]
  - Diarrhoea [Unknown]
  - Neuropathy peripheral [Unknown]
